FAERS Safety Report 5248904-4 (Version None)
Quarter: 2007Q1

REPORT INFORMATION
  Report Type: 
  Country: None (occurrence: None)
  Receive Date: 20070228
  Receipt Date: 20070214
  Transmission Date: 20070707
  Serious: Yes (Hospitalization, Other)
  Sender: FDA-Public Use
  Company Number: 2007GB00324

PATIENT
  Sex: Male

DRUGS (6)
  1. TENORMIN [Suspect]
     Route: 065
  2. SEROXAT [Suspect]
     Route: 065
     Dates: start: 20010731
  3. ANAFRANIL [Suspect]
     Route: 065
  4. SIMVASTATIN [Suspect]
  5. CITALOPRAM HYDROBROMIDE [Suspect]
  6. ALCOHOL [Suspect]

REACTIONS (3)
  - DRUG WITHDRAWAL SYNDROME [None]
  - OVERDOSE [None]
  - SUICIDE ATTEMPT [None]
